FAERS Safety Report 6867025-8 (Version None)
Quarter: 2010Q3

REPORT INFORMATION
  Report Type: 
  Country: None (occurrence: None)
  Receive Date: 20100722
  Receipt Date: 20100722
  Transmission Date: 20110219
  Serious: Yes (Other)
  Sender: FDA-Public Use
  Company Number: None

PATIENT
  Sex: Female
  Weight: 48.5349 kg

DRUGS (2)
  1. SEROQUEL XR [Suspect]
     Indication: BIPOLAR DISORDER
     Dosage: 300 MG XR NIGHTLY AT BEDTIME ORALLY
     Route: 048
     Dates: start: 20090701, end: 20091101
  2. SEROQUEL XR [Suspect]
     Indication: SLEEP DISORDER
     Dosage: 300 MG XR NIGHTLY AT BEDTIME ORALLY
     Route: 048
     Dates: start: 20090701, end: 20091101

REACTIONS (3)
  - GRUNTING [None]
  - MOANING [None]
  - TARDIVE DYSKINESIA [None]
